FAERS Safety Report 24674246 (Version 1)
Quarter: 2024Q4

REPORT INFORMATION
  Report Type: Spontaneous
  Country: US (occurrence: US)
  Receive Date: 20241128
  Receipt Date: 20241128
  Transmission Date: 20250114
  Serious: No
  Sender: AJANTA PHARMA USA INC
  Company Number: US-AJANTA-2024AJA00165

PATIENT
  Age: 73 Year
  Sex: Male
  Weight: 145 kg

DRUGS (1)
  1. CHOLESTYRAMINE [Suspect]
     Active Substance: CHOLESTYRAMINE
     Indication: Intestinal resection
     Route: 048
     Dates: start: 20240917, end: 20240920

REACTIONS (5)
  - Retching [Unknown]
  - Oropharyngeal discomfort [Unknown]
  - Product use complaint [Unknown]
  - Product use in unapproved indication [Unknown]
  - Product substitution issue [Unknown]

NARRATIVE: CASE EVENT DATE: 20240917
